FAERS Safety Report 16317779 (Version 1)
Quarter: 2020Q3

REPORT INFORMATION
  Report Type: Other
  Country: DE (occurrence: DE)
  Receive Date: 20190516
  Receipt Date: 20190516
  Transmission Date: 20201104
  Serious: Yes (Hospitalization, Other)
  Sender: FDA-Public Use
  Company Number: DE-CELLTRION INC.-2019DE021022

PATIENT

DRUGS (11)
  1. TRASTUZUMAB (UNKNOWN) [Suspect]
     Active Substance: TRASTUZUMAB
     Dosage: 6 MG/KG, EVERY 21 DAYS, DATE OF MOST RECENT DOSE OF TRASTUZUMAB PRIOR TO SAE: 17/MAY/2018
     Route: 042
     Dates: start: 20171109
  2. METAMIZOLE [Concomitant]
     Active Substance: METAMIZOLE
     Indication: PAIN
     Dosage: UNK
     Route: 065
     Dates: start: 20180525
  3. IBANDRONIC ACID. [Suspect]
     Active Substance: IBANDRONIC ACID
     Indication: METASTASES TO BONE
     Dosage: 6 MG, EVERY 21 DAYS
     Route: 042
     Dates: start: 20170928
  4. PERTUZUMAB. [Suspect]
     Active Substance: PERTUZUMAB
     Dosage: 420 MG, EVERY 3 WEEKS, LAST DOSE PRIOR TO THE EVENTS POLYNEUROPATHY AND TRANSIENT ISCHEMIC ATTACKS W
     Route: 042
     Dates: start: 20171108, end: 20180405
  5. FORADIL [Concomitant]
     Active Substance: FORMOTEROL FUMARATE
     Indication: PULMONARY EMBOLISM
     Dosage: 2 UNK, QD
     Dates: start: 20170630
  6. LORAZEPAM. [Concomitant]
     Active Substance: LORAZEPAM
     Dosage: UNK
     Route: 065
     Dates: start: 20180525
  7. HYDROCHLOROTHIAZIDE. [Concomitant]
     Active Substance: HYDROCHLOROTHIAZIDE
     Indication: HYPERTENSION
     Dosage: 25 MG, QD
     Route: 048
  8. LOSARTAN. [Concomitant]
     Active Substance: LOSARTAN
     Indication: HYPERTENSION
     Dosage: 50 MG, QD
     Route: 048
  9. OXAZEPAM. [Concomitant]
     Active Substance: OXAZEPAM
     Dosage: UNK
     Route: 065
     Dates: start: 20180525
  10. TORASEMIDE [Concomitant]
     Active Substance: TORSEMIDE
     Route: 065
  11. PRADAXA [Concomitant]
     Active Substance: DABIGATRAN ETEXILATE MESYLATE
     Indication: PULMONARY EMBOLISM
     Dosage: 75 MG, QD
     Route: 048
     Dates: start: 20170715

REACTIONS (8)
  - Loss of consciousness [Unknown]
  - Hemiparesis [Recovered/Resolved]
  - Dizziness [Recovered/Resolved]
  - Haematoma [Unknown]
  - Metastases to central nervous system [Recovered/Resolved]
  - Polyneuropathy [Not Recovered/Not Resolved]
  - Transient ischaemic attack [Not Recovered/Not Resolved]
  - Fall [Unknown]

NARRATIVE: CASE EVENT DATE: 20180416
